FAERS Safety Report 7103912-3 (Version None)
Quarter: 2010Q4

REPORT INFORMATION
  Report Type: 
  Country: None (occurrence: None)
  Receive Date: 20101115
  Receipt Date: 20101108
  Transmission Date: 20110411
  Serious: Yes (Death, Hospitalization)
  Sender: FDA-Public Use
  Company Number: CO-PFIZER INC-2010143996

PATIENT
  Age: 35 Year
  Sex: Male

DRUGS (6)
  1. OLMETEC [Suspect]
     Indication: HYPERTENSION
     Dosage: UNK
     Route: 048
     Dates: start: 20050903
  2. LIPITOR [Suspect]
     Indication: DYSLIPIDAEMIA
     Dosage: 10 MG, 1X/DAY
     Route: 048
     Dates: start: 20050903
  3. LOVASTATIN [Concomitant]
     Indication: BLOOD CHOLESTEROL
     Dosage: 20 MG, DAILY
  4. FUROSEMIDE [Concomitant]
     Dosage: 40 MG DAILY
  5. LOSARTAN [Concomitant]
     Dosage: 50 MG EVERY 12 HOURS
  6. ACETYLSALICYLIC ACID [Concomitant]
     Dosage: 100 MG, DAILY

REACTIONS (4)
  - CARDIO-RESPIRATORY ARREST [None]
  - CHRONIC OBSTRUCTIVE PULMONARY DISEASE [None]
  - DYSPNOEA [None]
  - RESPIRATORY DISORDER [None]
